FAERS Safety Report 20219875 (Version 1)
Quarter: 2021Q4

REPORT INFORMATION
  Report Type: Spontaneous
  Country: BR (occurrence: BR)
  Receive Date: 20211222
  Receipt Date: 20211222
  Transmission Date: 20220303
  Serious: Yes (Death, Hospitalization, Other)
  Sender: FDA-Public Use
  Company Number: BR-JAZZ-2021-BR-022707

PATIENT
  Sex: Female

DRUGS (1)
  1. DEFITELIO [Suspect]
     Active Substance: DEFIBROTIDE SODIUM
     Indication: Product used for unknown indication
     Dosage: UNKNOWN DOSE

REACTIONS (6)
  - Sepsis [Fatal]
  - Graft versus host disease [Fatal]
  - Fungal infection [Fatal]
  - Multiple organ dysfunction syndrome [Fatal]
  - Abdominal pain [Unknown]
  - Weight increased [Unknown]
